FAERS Safety Report 8044964-6 (Version None)
Quarter: 2012Q1

REPORT INFORMATION
  Report Type: 
  Country: None (occurrence: None)
  Receive Date: 20120113
  Receipt Date: 20120105
  Transmission Date: 20120608
  Serious: Yes (Other)
  Sender: FDA-Public Use
  Company Number: US-JNJFOC-20120101831

PATIENT
  Sex: Female
  Weight: 104.33 kg

DRUGS (6)
  1. PREDNISONE [Concomitant]
     Indication: ANKYLOSING SPONDYLITIS
     Route: 042
     Dates: start: 20111201, end: 20111201
  2. REMICADE [Suspect]
     Indication: ANKYLOSING SPONDYLITIS
     Route: 042
     Dates: start: 20111201
  3. REMICADE [Suspect]
     Route: 042
     Dates: start: 20111228, end: 20111228
  4. BENADRYL [Concomitant]
     Indication: PREMEDICATION
  5. MELOXICAM [Concomitant]
     Indication: ANTIINFLAMMATORY THERAPY
     Dates: start: 20111219, end: 20111226
  6. ACETAMINOPHEN [Concomitant]
     Indication: PREMEDICATION

REACTIONS (6)
  - VOMITING [None]
  - PALPITATIONS [None]
  - NAUSEA [None]
  - INFLUENZA LIKE ILLNESS [None]
  - OEDEMA PERIPHERAL [None]
  - MIGRAINE [None]
